FAERS Safety Report 5605549-1 (Version None)
Quarter: 2008Q1

REPORT INFORMATION
  Report Type: 
  Country: None (occurrence: None)
  Receive Date: 20080123
  Receipt Date: 20071126
  Transmission Date: 20080703
  Serious: Yes (Death)
  Sender: FDA-Public Use
  Company Number: 8029258

PATIENT

DRUGS (2)
  1. KEPPRA [Suspect]
     Indication: MYOCLONIC EPILEPSY
     Dates: start: 20050801
  2. TEGRETOL [Concomitant]

REACTIONS (1)
  - ROAD TRAFFIC ACCIDENT [None]
